FAERS Safety Report 9937188 (Version 1)
Quarter: 2014Q1

REPORT INFORMATION
  Report Type: Spontaneous
  Country: US (occurrence: US)
  Receive Date: 20140301
  Receipt Date: 20140301
  Transmission Date: 20141002
  Serious: No
  Sender: FDA-Public Use
  Company Number: US-009507513-1402USA012157

PATIENT
  Age: 54 Year
  Sex: Male

DRUGS (3)
  1. PROSCAR [Suspect]
     Indication: BENIGN PROSTATIC HYPERPLASIA
     Dosage: 5 MG
     Route: 048
     Dates: start: 201308
  2. TYLENOL [Concomitant]
  3. IBUPROFEN [Concomitant]

REACTIONS (3)
  - Sexual dysfunction [Unknown]
  - Erectile dysfunction [Unknown]
  - Ejaculation disorder [Unknown]
